FAERS Safety Report 25361709 (Version 1)
Quarter: 2025Q2

REPORT INFORMATION
  Report Type: Report from Study
  Country: US (occurrence: US)
  Receive Date: 20250527
  Receipt Date: 20250527
  Transmission Date: 20250716
  Serious: Yes (Hospitalization)
  Sender: ALEXION PHARMACEUTICALS
  Company Number: 202505USA010762US

PATIENT

DRUGS (1)
  1. BENRALIZUMAB [Suspect]
     Active Substance: BENRALIZUMAB
     Indication: Asthma
     Dosage: 30 MILLIGRAM, Q8W

REACTIONS (5)
  - Dyspnoea [Unknown]
  - Wheezing [Unknown]
  - Oropharyngeal discomfort [Unknown]
  - Arthralgia [Unknown]
  - Drug ineffective [Unknown]
